FAERS Safety Report 19191561 (Version 1)
Quarter: 2021Q2

REPORT INFORMATION
  Report Type: Spontaneous
  Country: US (occurrence: US)
  Receive Date: 20210429
  Receipt Date: 20210429
  Transmission Date: 20210717
  Serious: Yes (Other)
  Sender: FDA-Public Use
  Company Number: US-CIPLA LTD.-2021US03038

PATIENT

DRUGS (1)
  1. WARFARIN [Suspect]
     Active Substance: WARFARIN
     Indication: EMBOLISM VENOUS
     Dosage: UNK
     Route: 065

REACTIONS (3)
  - Activated partial thromboplastin time prolonged [Recovered/Resolved]
  - Pulmonary embolism [Recovered/Resolved]
  - Anticoagulation drug level above therapeutic [Recovered/Resolved]
